FAERS Safety Report 8509158 (Version 3)
Quarter: 2014Q1

REPORT INFORMATION
  Report Type: Spontaneous
  Country: US (occurrence: US)
  Receive Date: 20120412
  Receipt Date: 20140102
  Transmission Date: 20141002
  Serious: Yes (Hospitalization)
  Sender: FDA-Public Use
  Company Number: US-ASTRAZENECA-2011SE41559

PATIENT
  Age: 61 Year
  Sex: Female
  Weight: 86.2 kg

DRUGS (9)
  1. NEXIUM [Suspect]
     Indication: GASTROOESOPHAGEAL REFLUX DISEASE
     Route: 048
     Dates: start: 2007, end: 2011
  2. NEXIUM [Suspect]
     Indication: GASTROOESOPHAGEAL REFLUX DISEASE
     Route: 048
     Dates: start: 2007, end: 2011
  3. NEXIUM [Suspect]
     Indication: GASTROOESOPHAGEAL REFLUX DISEASE
     Route: 048
     Dates: start: 20090702
  4. ACTONEL [Concomitant]
  5. ALENDRONATE [Concomitant]
  6. CALCIUM [Concomitant]
     Indication: BONE DISORDER
  7. VITAMIN D [Concomitant]
  8. LORTAB [Concomitant]
  9. TERAZOSIN [Concomitant]

REACTIONS (11)
  - Gallbladder disorder [Unknown]
  - Sinus disorder [Unknown]
  - Small intestinal obstruction [Unknown]
  - Pancreatitis [Unknown]
  - Osteopenia [Unknown]
  - Multiple fractures [Unknown]
  - Pneumonia [Unknown]
  - Hiatus hernia [Unknown]
  - Cardiac disorder [Unknown]
  - Bone density decreased [Unknown]
  - Osteoporosis [Unknown]
